FAERS Safety Report 18788825 (Version 1)
Quarter: 2021Q1

REPORT INFORMATION
  Report Type: Spontaneous
  Country: US (occurrence: US)
  Receive Date: 20210126
  Receipt Date: 20210126
  Transmission Date: 20210419
  Serious: No
  Sender: FDA-Public Use
  Company Number: US-BRECKENRIDGE PHARMACEUTICAL, INC.-2105817

PATIENT
  Age: 63 Year
  Sex: Female

DRUGS (3)
  1. DULOXETINE. [Suspect]
     Active Substance: DULOXETINE
     Indication: DEPRESSION
     Route: 048
  2. RAMIPRIL. [Concomitant]
     Active Substance: RAMIPRIL
  3. ARMOUR THYROID [Concomitant]
     Active Substance: THYROID, PORCINE

REACTIONS (11)
  - Diarrhoea [None]
  - Hyperhidrosis [None]
  - Muscle spasms [None]
  - Arthralgia [None]
  - Headache [None]
  - Abdominal pain [None]
  - Dizziness [None]
  - Malaise [None]
  - Dry mouth [None]
  - Vertigo [None]
  - Vision blurred [None]
